FAERS Safety Report 14567618 (Version 1)
Quarter: 2018Q1

REPORT INFORMATION
  Report Type: Spontaneous
  Country: US (occurrence: US)
  Receive Date: 20180223
  Receipt Date: 20180223
  Transmission Date: 20180509
  Serious: Yes (Hospitalization)
  Sender: FDA-Public Use
  Company Number: US-FRESENIUS KABI-FK201802118

PATIENT
  Age: 2 Year
  Sex: Female

DRUGS (6)
  1. METHOTREXATE (MANUFACTURER UNKNOWN) [Suspect]
     Active Substance: METHOTREXATE
     Indication: X-LINKED CHROMOSOMAL DISORDER
     Route: 065
  2. CYCLOPHOSPHAMIDE. [Suspect]
     Active Substance: CYCLOPHOSPHAMIDE
     Indication: X-LINKED CHROMOSOMAL DISORDER
     Route: 065
  3. METHYLPREDNISOLONE (MANUFACTURER UNKNOWN) [Suspect]
     Active Substance: METHYLPREDNISOLONE
     Indication: X-LINKED CHROMOSOMAL DISORDER
     Route: 065
  4. FLUDARABINE [Suspect]
     Active Substance: FLUDARABINE PHOSPHATE
     Indication: X-LINKED CHROMOSOMAL DISORDER
     Route: 065
  5. CICLOSPORINE [Suspect]
     Active Substance: CYCLOSPORINE
     Indication: X-LINKED CHROMOSOMAL DISORDER
     Route: 042
  6. MYCOPHENOLATE-MOFETIL [Suspect]
     Active Substance: MYCOPHENOLATE MOFETIL
     Indication: X-LINKED CHROMOSOMAL DISORDER
     Route: 065

REACTIONS (3)
  - Fungaemia [Not Recovered/Not Resolved]
  - Penicillium infection [Not Recovered/Not Resolved]
  - Aspergillus infection [Not Recovered/Not Resolved]
